FAERS Safety Report 25413712 (Version 5)
Quarter: 2025Q3

REPORT INFORMATION
  Report Type: Report from Study
  Country: US (occurrence: US)
  Receive Date: 20250609
  Receipt Date: 20250903
  Transmission Date: 20251020
  Serious: Yes (Hospitalization, Other)
  Sender: TAKEDA
  Company Number: US-TAKEDA-2025TUS043791

PATIENT
  Sex: Female

DRUGS (20)
  1. TEDUGLUTIDE [Suspect]
     Active Substance: TEDUGLUTIDE
     Indication: Short-bowel syndrome
  2. TEDUGLUTIDE [Suspect]
     Active Substance: TEDUGLUTIDE
     Dosage: 0.21 MILLILITER, QD
     Dates: start: 202411
  3. TEDUGLUTIDE [Suspect]
     Active Substance: TEDUGLUTIDE
  4. TEDUGLUTIDE [Suspect]
     Active Substance: TEDUGLUTIDE
  5. OCTREOTIDE [Concomitant]
     Active Substance: OCTREOTIDE
  6. NABUMETONE [Concomitant]
     Active Substance: NABUMETONE
     Dosage: 750 MILLIGRAM, BID
  7. ATORVASTATIN CALCIUM [Concomitant]
     Active Substance: ATORVASTATIN CALCIUM
     Dosage: 40 MILLIGRAM, QD
  8. BUSPIRONE HYDROCHLORIDE [Concomitant]
     Active Substance: BUSPIRONE HYDROCHLORIDE
     Dosage: 20 MILLIGRAM, BID
  9. MIRTAZAPINE [Concomitant]
     Active Substance: MIRTAZAPINE
     Dosage: 7.5 MILLIGRAM, QD
  10. FLUOXETINE HYDROCHLORIDE [Concomitant]
     Active Substance: FLUOXETINE HYDROCHLORIDE
     Dosage: 40 MILLIGRAM, QD
  11. ATROPINE SULFATE [Concomitant]
     Active Substance: ATROPINE SULFATE
  12. FAMOTIDINE [Concomitant]
     Active Substance: FAMOTIDINE
  13. HYDROMORPHONE HCL [Concomitant]
     Active Substance: HYDROMORPHONE HYDROCHLORIDE
     Dosage: 2 MILLIGRAM, Q6HR
  14. SANDOSTATIN [Concomitant]
     Active Substance: OCTREOTIDE ACETATE
  15. VITAMIN B12 [Concomitant]
     Active Substance: CYANOCOBALAMIN
  16. LOMOTIL [Concomitant]
     Active Substance: ATROPINE SULFATE\DIPHENOXYLATE HYDROCHLORIDE
     Dosage: UNK UNK, Q6HR
  17. POTASSIUM [Concomitant]
     Active Substance: POTASSIUM
  18. MAGNESIUM [Concomitant]
     Active Substance: MAGNESIUM
  19. OCTREOTIDE ACETATE [Concomitant]
     Active Substance: OCTREOTIDE ACETATE
     Dosage: 100 MICROGRAM PER MILLILITRE
  20. BUPROPION [Concomitant]
     Active Substance: BUPROPION
     Dosage: 75 MILLIGRAM, QD

REACTIONS (9)
  - Nephrolithiasis [Unknown]
  - Ovarian cyst [Unknown]
  - Spinal cord neoplasm [Unknown]
  - Pancreatic enzymes increased [Unknown]
  - Stress [Unknown]
  - Anxiety [Unknown]
  - Gastrointestinal stoma complication [Unknown]
  - Dehydration [Not Recovered/Not Resolved]
  - Back pain [Recovered/Resolved]
